FAERS Safety Report 25543559 (Version 2)
Quarter: 2025Q4

REPORT INFORMATION
  Report Type: Report from Study
  Country: AU (occurrence: AU)
  Receive Date: 20250711
  Receipt Date: 20251015
  Transmission Date: 20260118
  Serious: Yes (Other)
  Sender: RANBAXY
  Company Number: AU-SUN PHARMACEUTICAL INDUSTRIES LTD-2025RR-516479

PATIENT
  Age: 49 Year
  Sex: Male

DRUGS (21)
  1. CYCLOSPORINE [Suspect]
     Active Substance: CYCLOSPORINE
     Indication: Ulcer
     Dosage: 3 MILLIGRAM/KILOGRAM, DAILY, DIVIDED INTO 2 DOSES
     Route: 065
  2. CYCLOSPORINE [Suspect]
     Active Substance: CYCLOSPORINE
     Indication: Pyoderma gangrenosum
  3. PREDNISOLONE [Suspect]
     Active Substance: PREDNISOLONE
     Indication: Ulcer
     Dosage: 20?75MG DAILY
     Route: 065
  4. PREDNISOLONE [Suspect]
     Active Substance: PREDNISOLONE
     Indication: Pyoderma gangrenosum
  5. MYCOPHENOLIC ACID [Suspect]
     Active Substance: MYCOPHENOLIC ACID
     Indication: Ulcer
     Dosage: 2 MILLIGRAM, BID
     Route: 065
  6. MYCOPHENOLIC ACID [Suspect]
     Active Substance: MYCOPHENOLIC ACID
     Indication: Pyoderma gangrenosum
  7. METHYLPREDNISOLONE [Suspect]
     Active Substance: METHYLPREDNISOLONE
     Indication: Ulcer
     Dosage: 500 MILLIGRAM, DAILY
     Route: 042
  8. METHYLPREDNISOLONE [Suspect]
     Active Substance: METHYLPREDNISOLONE
     Indication: Pyoderma gangrenosum
  9. TACROLIMUS [Suspect]
     Active Substance: TACROLIMUS
     Indication: Ulcer
     Dosage: 4 MILLIGRAM, BID
     Route: 065
  10. TACROLIMUS [Suspect]
     Active Substance: TACROLIMUS
     Indication: Pyoderma gangrenosum
  11. HUMAN IMMUNOGLOBULIN G [Suspect]
     Active Substance: HUMAN IMMUNOGLOBULIN G
     Indication: Ulcer
     Dosage: 1 GRAM
     Route: 042
  12. HUMAN IMMUNOGLOBULIN G [Suspect]
     Active Substance: HUMAN IMMUNOGLOBULIN G
     Indication: Pyoderma gangrenosum
  13. INFLIXIMAB [Suspect]
     Active Substance: INFLIXIMAB
     Indication: Ulcer
     Dosage: 750 MILLIGRAM, 4-WEEKLY
     Route: 065
  14. INFLIXIMAB [Suspect]
     Active Substance: INFLIXIMAB
     Indication: Pyoderma gangrenosum
  15. USTEKINUMAB [Suspect]
     Active Substance: USTEKINUMAB
     Indication: Ulcer
     Dosage: 300 MILLIGRAM, 6-WEEKLY
     Route: 065
  16. USTEKINUMAB [Suspect]
     Active Substance: USTEKINUMAB
     Indication: Pyoderma gangrenosum
  17. ADALIMUMAB [Suspect]
     Active Substance: ADALIMUMAB
     Indication: Ulcer
     Dosage: 40 MILLIGRAM, WEEKLY
     Route: 065
  18. ADALIMUMAB [Suspect]
     Active Substance: ADALIMUMAB
     Indication: Pyoderma gangrenosum
     Dosage: 80 MILLIGRAM, WEEKLY
     Route: 065
  19. ADALIMUMAB [Suspect]
     Active Substance: ADALIMUMAB
     Dosage: 160 MILLIGRAM, WEEKLY
     Route: 065
  20. SECUKINUMAB [Suspect]
     Active Substance: SECUKINUMAB
     Indication: Ulcer
     Dosage: 300 MILLIGRAM, 0, 1, 2, 3, 4, THEN 4-WEEKLY
     Route: 065
  21. SECUKINUMAB [Suspect]
     Active Substance: SECUKINUMAB
     Indication: Pyoderma gangrenosum

REACTIONS (2)
  - Disease progression [Unknown]
  - Drug ineffective [Unknown]
